FAERS Safety Report 8374287-7 (Version None)
Quarter: 2012Q2

REPORT INFORMATION
  Report Type: 
  Country: None (occurrence: None)
  Receive Date: 20120521
  Receipt Date: 20120202
  Transmission Date: 20120825
  Serious: No
  Sender: FDA-Public Use
  Company Number: US-BAYER-2012-011221

PATIENT
  Age: 57 Year
  Sex: Male

DRUGS (4)
  1. LEVITRA [Suspect]
     Indication: ERECTILE DYSFUNCTION
     Dosage: 10 MG, PRN
     Route: 048
     Dates: start: 20080601
  2. MAXALT [Concomitant]
  3. AMITRIPTYLINE HCL [Concomitant]
  4. TOPIRAMATE [Concomitant]

REACTIONS (1)
  - ERECTILE DYSFUNCTION [None]
